FAERS Safety Report 5642051-5 (Version None)
Quarter: 2008Q1

REPORT INFORMATION
  Report Type: 
  Country: None (occurrence: None)
  Receive Date: 20080131
  Receipt Date: 20071101
  Transmission Date: 20080703
  Serious: No
  Sender: FDA-Public Use
  Company Number: 163-21880-07110148

PATIENT
  Age: 66 Year
  Sex: Male

DRUGS (4)
  1. REVLIMID [Suspect]
     Indication: MULTIPLE MYELOMA
     Dosage: 25, 15  MG, DAILY X 21 DAYS, ORAL
     Route: 048
     Dates: start: 20070815, end: 20070901
  2. REVLIMID [Suspect]
     Indication: MULTIPLE MYELOMA
     Dosage: 25, 15  MG, DAILY X 21 DAYS, ORAL
     Route: 048
     Dates: start: 20071101
  3. MEDICATION FOR CONSTIPATION (ALL OTHER THERAPEUTIC PRODUCTS) [Suspect]
     Indication: CONSTIPATION
  4. MEDICATION FOR CONSTIPATION (ALL OTHER THERAPEUTIC PRODUCTS) [Suspect]
     Indication: MULTIPLE MYELOMA

REACTIONS (4)
  - BONE PAIN [None]
  - CONSTIPATION [None]
  - NAUSEA [None]
  - STOMACH DISCOMFORT [None]
